FAERS Safety Report 24908388 (Version 1)
Quarter: 2025Q1

REPORT INFORMATION
  Report Type: Spontaneous
  Country: US (occurrence: US)
  Receive Date: 20250131
  Receipt Date: 20250131
  Transmission Date: 20250409
  Serious: Yes (Other)
  Sender: SANOFI AVENTIS
  Company Number: US-SA-2025SA029591

PATIENT
  Age: 33 Year
  Sex: Female

DRUGS (19)
  1. DUPIXENT [Suspect]
     Active Substance: DUPILUMAB
     Dosage: 300 MG, QOW
     Route: 058
  2. HYDROXYZINE [Concomitant]
     Active Substance: HYDROXYZINE HYDROCHLORIDE
  3. PROMETHAZINE [Concomitant]
     Active Substance: PROMETHAZINE HYDROCHLORIDE
  4. MIDODRINE [Concomitant]
     Active Substance: MIDODRINE
  5. ALBUTEROL SULFATE [Concomitant]
     Active Substance: ALBUTEROL SULFATE
  6. IBUPROFEN [Concomitant]
     Active Substance: IBUPROFEN
  7. LIDOCAINE [Concomitant]
     Active Substance: LIDOCAINE
  8. LAMOTRIGINE [Concomitant]
     Active Substance: LAMOTRIGINE
  9. MELOXICAM [Concomitant]
     Active Substance: MELOXICAM
  10. ZOLPIDEM TARTRATE [Concomitant]
     Active Substance: ZOLPIDEM TARTRATE
  11. KETOROLAC TROMETHAMINE [Concomitant]
     Active Substance: KETOROLAC TROMETHAMINE
  12. METHOCARBAMOL [Concomitant]
     Active Substance: METHOCARBAMOL
  13. PREGABALIN [Concomitant]
     Active Substance: PREGABALIN
  14. OXYCODONE AND ACETAMINOPHEN [Concomitant]
     Active Substance: ACETAMINOPHEN\OXYCODONE HYDROCHLORIDE
  15. TIZANIDINE HYDROCHLORIDE [Concomitant]
     Active Substance: TIZANIDINE HYDROCHLORIDE
  16. DULOXETINE [Concomitant]
     Active Substance: DULOXETINE
  17. QULIPTA [Concomitant]
     Active Substance: ATOGEPANT
  18. SUMATRIPTAN SUCCINATE [Concomitant]
     Active Substance: SUMATRIPTAN SUCCINATE
  19. DOXEPIN [Concomitant]
     Active Substance: DOXEPIN

REACTIONS (3)
  - Hallucination [Unknown]
  - Weight decreased [Unknown]
  - Intervertebral disc protrusion [Unknown]
